FAERS Safety Report 7581361-1 (Version None)
Quarter: 2011Q2

REPORT INFORMATION
  Report Type: 
  Country: None (occurrence: None)
  Receive Date: 20110629
  Receipt Date: 20110622
  Transmission Date: 20111010
  Serious: Yes (Hospitalization, Other)
  Sender: FDA-Public Use
  Company Number: US-CELGENEUS-163-21880-11040651

PATIENT
  Sex: Male
  Weight: 78.224 kg

DRUGS (30)
  1. DEXAMETHASONE [Suspect]
     Dosage: 40 MILLIGRAM
     Route: 065
     Dates: start: 20110413
  2. CALCIUM CARBONATE [Concomitant]
     Dosage: 500 MILLIGRAM
     Route: 048
     Dates: start: 20020101
  3. LOVENOX [Concomitant]
     Dosage: 40/0.4MG/ML
     Route: 058
     Dates: start: 20110108, end: 20110413
  4. VALIUM [Concomitant]
     Indication: ANXIETY
     Dosage: 5 MILLIGRAM
     Route: 048
     Dates: end: 20110308
  5. WHOLE BLOOD [Concomitant]
     Dosage: 2 UNITS
     Route: 051
     Dates: start: 20110401
  6. REVLIMID [Suspect]
     Dosage: 25 MILLIGRAM
     Route: 048
     Dates: start: 20110413
  7. ACYCLOVIR [Concomitant]
     Indication: ANTIVIRAL PROPHYLAXIS
     Dosage: 400 MILLIGRAM
     Route: 048
     Dates: start: 20051026
  8. FENTANYL [Concomitant]
     Route: 062
     Dates: start: 20110128, end: 20110407
  9. MULTI-VITAMINS [Concomitant]
     Dosage: 1 TABLET
     Route: 048
  10. VICODIN [Concomitant]
     Indication: PAIN
     Dosage: 1 TABLET
     Route: 048
     Dates: start: 20110128
  11. LASIX [Concomitant]
     Dosage: 20 MILLIGRAM
     Route: 065
     Dates: start: 20110401
  12. AZITHROMYCIN [Concomitant]
     Dosage: 250 MILLIGRAM
     Route: 048
     Dates: start: 20081006
  13. CARVEDILOL [Concomitant]
     Indication: HYPERTENSION
     Dosage: 6.5 MILLIGRAM
     Route: 048
     Dates: start: 20090301
  14. FENTANYL [Concomitant]
     Indication: NECK PAIN
  15. SPIRONOLACTONE [Concomitant]
     Indication: HYPERTENSION
     Dosage: 25 MILLIGRAM
     Route: 048
     Dates: start: 20080301
  16. TONIC WATER [Concomitant]
     Dosage: 8 OUNCE
     Route: 058
     Dates: start: 20110322, end: 20110301
  17. AMLODIPINE [Concomitant]
     Indication: HYPERTENSION
     Dosage: 5 MILLIGRAM
     Route: 048
     Dates: start: 20070101
  18. FOLIC ACID [Concomitant]
     Route: 048
     Dates: start: 20020101
  19. DIURETICS [Concomitant]
     Route: 051
     Dates: start: 20110402
  20. LOSARTAN POTASSIUM [Concomitant]
     Indication: CORONARY ARTERY DISEASE
     Dosage: 50 MILLIGRAM
     Route: 048
     Dates: start: 20110316
  21. FERROUS SULFATE TAB [Concomitant]
     Dosage: 50 MILLIGRAM
     Route: 048
     Dates: start: 20060101
  22. CARDURA [Concomitant]
     Dosage: 2 MILLIGRAM
     Route: 048
     Dates: start: 20080101
  23. DEXAMETHASONE [Suspect]
     Indication: MULTIPLE MYELOMA
     Dosage: 40 MILLIGRAM
     Route: 065
     Dates: start: 20110111, end: 20110328
  24. ASPIRIN [Concomitant]
     Indication: ANTICOAGULANT THERAPY
     Dosage: 81 MILLIGRAM
     Route: 048
     Dates: start: 20071023
  25. MYCELEX [Concomitant]
     Indication: PROPHYLAXIS
     Dosage: 1 TABLET
     Route: 048
     Dates: start: 20101229
  26. REVLIMID [Suspect]
     Indication: MULTIPLE MYELOMA
     Dosage: 25 MILLIGRAM
     Route: 048
     Dates: start: 20110111, end: 20110327
  27. PAMIDRONATE DISODIUM [Concomitant]
     Dosage: 90 MILLIGRAM
     Route: 051
     Dates: start: 20110103
  28. PREVACID [Concomitant]
     Dosage: 15 MILLIGRAM
     Route: 048
     Dates: start: 20110110
  29. SENOKOT [Concomitant]
     Indication: CONSTIPATION
     Dosage: 2 TABLET
     Route: 048
     Dates: start: 20030101
  30. SODIUM CHLORIDE [Concomitant]
     Dosage: 2 LITERS
     Route: 065
     Dates: start: 20110401

REACTIONS (6)
  - ABDOMINAL DISTENSION [None]
  - DIARRHOEA [None]
  - PERICARDIAL EFFUSION [None]
  - PLEURAL EFFUSION [None]
  - PNEUMONIA RESPIRATORY SYNCYTIAL VIRAL [None]
  - NAUSEA [None]
